FAERS Safety Report 5914255-5 (Version None)
Quarter: 2008Q4

REPORT INFORMATION
  Report Type: 
  Country: None (occurrence: None)
  Receive Date: 20081009
  Receipt Date: 20080930
  Transmission Date: 20090506
  Serious: Yes (Hospitalization)
  Sender: FDA-Public Use
  Company Number: US-ELI_LILLY_AND_COMPANY-US200809000930

PATIENT
  Age: 18 Year
  Sex: Male

DRUGS (4)
  1. CYMBALTA [Suspect]
     Indication: DEPRESSION
     Dosage: 1 D/F, UNK
     Dates: start: 20080721, end: 20080804
  2. CYMBALTA [Suspect]
     Dosage: 60 MG, UNK
     Dates: start: 20080804, end: 20080830
  3. LEXAPRO [Concomitant]
  4. CONCERTA [Concomitant]
     Indication: ATTENTION DEFICIT/HYPERACTIVITY DISORDER
     Dosage: 54 MG, UNK
     Dates: start: 20071201

REACTIONS (4)
  - DRUG EFFECT DECREASED [None]
  - HYPERTENSION [None]
  - SUICIDE ATTEMPT [None]
  - TACHYCARDIA [None]
